FAERS Safety Report 11628875 (Version 4)
Quarter: 2015Q4

REPORT INFORMATION
  Report Type: Report from Study
  Country: PL (occurrence: PL)
  Receive Date: 20151014
  Receipt Date: 20151104
  Transmission Date: 20160304
  Serious: Yes (Hospitalization, Other)
  Sender: FDA-Public Use
  Company Number: PL-GLAXOSMITHKLINE-PL2015GSK138660

PATIENT
  Age: 40 Year
  Sex: Female
  Weight: 58 kg

DRUGS (14)
  1. CLEXANE [Concomitant]
     Active Substance: ENOXAPARIN SODIUM
     Indication: THROMBOSIS PROPHYLAXIS
     Dosage: 40 MG, QD
     Route: 058
     Dates: start: 20150121, end: 201507
  2. TARGOCID [Concomitant]
     Active Substance: TEICOPLANIN
     Indication: SEPSIS
     Dosage: 0.4 G, QD
     Route: 042
     Dates: start: 20150704, end: 201507
  3. LEVOXA [Concomitant]
     Active Substance: LEVOFLOXACIN
     Indication: CELLULITIS
     Dosage: 1000 MG, BID
     Route: 042
     Dates: start: 20150206, end: 201502
  4. METYPRED [Concomitant]
     Active Substance: METHYLPREDNISOLONE
     Indication: SYSTEMIC LUPUS ERYTHEMATOSUS
     Dosage: 6 MG, QD
     Route: 048
     Dates: start: 20150121, end: 20150125
  5. METYPRED [Concomitant]
     Active Substance: METHYLPREDNISOLONE
     Dosage: 8 MG, QD
     Route: 048
     Dates: start: 20150202
  6. METYPRED [Concomitant]
     Active Substance: METHYLPREDNISOLONE
     Dosage: 10 MG, QD
     Route: 048
     Dates: start: 20150126, end: 20150201
  7. METYPRED [Concomitant]
     Active Substance: METHYLPREDNISOLONE
     Dosage: 6 MG, QD
     Route: 048
     Dates: start: 201507
  8. AUGMENTIN [Concomitant]
     Active Substance: AMOXICILLIN\CLAVULANATE POTASSIUM
     Indication: CELLULITIS
     Dosage: 3.6 G, TID
     Route: 042
     Dates: start: 20150215
  9. PLACEBO [Suspect]
     Active Substance: UNSPECIFIED INGREDIENT
     Indication: SYSTEMIC LUPUS ERYTHEMATOSUS
     Dosage: 200 MG, WE
     Route: 058
     Dates: start: 20130425, end: 20140417
  10. BELIMUMAB [Suspect]
     Active Substance: BELIMUMAB
     Indication: SYSTEMIC LUPUS ERYTHEMATOSUS
     Dosage: 200 MG, WE
     Route: 058
     Dates: start: 20140424
  11. KETONAL (NOS) [Concomitant]
     Indication: PYREXIA
     Dosage: 50 MG, BID
     Route: 048
     Dates: start: 20150121, end: 201504
  12. PARACETAMOL [Concomitant]
     Active Substance: ACETAMINOPHEN
     Indication: PYREXIA
     Dosage: 1000 MG, PRN
     Route: 048
     Dates: start: 201501, end: 201507
  13. ENTEROL (NOS) [Concomitant]
     Indication: PROPHYLAXIS
     Dosage: 250 MG, QD
     Route: 048
     Dates: start: 201507, end: 20150731
  14. AZITHROMYCIN [Concomitant]
     Active Substance: AZITHROMYCIN ANHYDROUS
     Indication: POSTOPERATIVE WOUND INFECTION
     Dosage: 500 MG, QD
     Route: 048
     Dates: start: 20150706, end: 20150713

REACTIONS (2)
  - Mycobacterial infection [Recovering/Resolving]
  - Paraspinal abscess [Recovering/Resolving]

NARRATIVE: CASE EVENT DATE: 20141105
